FAERS Safety Report 9870539 (Version 1)
Quarter: 2014Q1

REPORT INFORMATION
  Report Type: Spontaneous
  Country: US (occurrence: US)
  Receive Date: 20140205
  Receipt Date: 20140205
  Transmission Date: 20141002
  Serious: Yes (Other)
  Sender: FDA-Public Use
  Company Number: US-SA-2014SA014164

PATIENT
  Age: 57 Year
  Sex: Male
  Weight: 72.57 kg

DRUGS (5)
  1. MULTAQ [Suspect]
     Route: 065
  2. POTASSIUM [Concomitant]
     Route: 065
  3. LORTAB [Concomitant]
     Dosage: 7.5/500
     Route: 065
     Dates: start: 20130725
  4. MELOXICAM [Concomitant]
     Route: 065
     Dates: start: 20130725
  5. SOMA [Concomitant]
     Dates: start: 20130725

REACTIONS (3)
  - Back pain [Unknown]
  - Anaemia [Unknown]
  - Liver function test abnormal [Unknown]
